FAERS Safety Report 19385497 (Version 2)
Quarter: 2021Q2

REPORT INFORMATION
  Report Type: Report from Study
  Country: ES (occurrence: ES)
  Receive Date: 20210608
  Receipt Date: 20210611
  Transmission Date: 20210717
  Serious: Yes (Other)
  Sender: FDA-Public Use
  Company Number: ES-BEH-2021132390

PATIENT
  Age: 63 Year
  Sex: Male
  Weight: 68 kg

DRUGS (6)
  1. RIASTAP [Suspect]
     Active Substance: FIBRINOGEN HUMAN
     Indication: PROCEDURAL HAEMORRHAGE
     Dosage: UNK
     Route: 042
     Dates: start: 20210212, end: 20210212
  2. ADIRO [Concomitant]
     Active Substance: ASPIRIN
     Indication: COMPLICATIONS OF TRANSPLANTED LIVER
     Dosage: 100 MILLIGRAM, QD
     Route: 048
  3. RIASTAP [Suspect]
     Active Substance: FIBRINOGEN HUMAN
     Dosage: UNK
     Route: 042
     Dates: start: 20210212, end: 20210212
  4. RIASTAP [Suspect]
     Active Substance: FIBRINOGEN HUMAN
     Indication: HYPOFIBRINOGENAEMIA
     Dosage: 3 GRAM
     Route: 042
     Dates: start: 20210212, end: 20210212
  5. INSULIN [Concomitant]
     Active Substance: INSULIN NOS
     Indication: DIABETES MELLITUS
  6. INSULIN [Concomitant]
     Active Substance: INSULIN NOS
     Indication: DIABETES MELLITUS

REACTIONS (2)
  - Procedural haemorrhage [Recovered/Resolved]
  - Transplantation complication [Unknown]

NARRATIVE: CASE EVENT DATE: 20210212
